FAERS Safety Report 9524638 (Version 1)
Quarter: 2013Q3

REPORT INFORMATION
  Report Type: Spontaneous
  Country: US (occurrence: US)
  Receive Date: 20130916
  Receipt Date: 20130916
  Transmission Date: 20140515
  Serious: Yes (Other)
  Sender: FDA-Public Use
  Company Number: US-PFIZER INC-2013262437

PATIENT
  Age: 49 Year
  Sex: Female
  Weight: 80.27 kg

DRUGS (3)
  1. LYRICA [Suspect]
     Indication: FIBROMYALGIA
     Dosage: 150 MG, 2X/DAY
     Route: 048
     Dates: start: 2012, end: 20130907
  2. CYMBALTA [Suspect]
     Indication: FIBROMYALGIA
     Dosage: UNK
     Dates: start: 2012
  3. VICODIN [Concomitant]
     Indication: BACK PAIN
     Dosage: UNK

REACTIONS (16)
  - Road traffic accident [Unknown]
  - Loss of consciousness [Unknown]
  - Impaired driving ability [Unknown]
  - Contusion [Unknown]
  - Laceration [Unknown]
  - Thermal burn [Unknown]
  - Intentional drug misuse [Unknown]
  - Photosensitivity reaction [Unknown]
  - Malaise [Unknown]
  - Somnolence [Unknown]
  - Fatigue [Unknown]
  - Incoherent [Unknown]
  - Nausea [Unknown]
  - Dysarthria [Unknown]
  - Pain in extremity [Unknown]
  - Drug ineffective [Unknown]
